FAERS Safety Report 5623615-1 (Version None)
Quarter: 2008Q1

REPORT INFORMATION
  Report Type: 
  Country: None (occurrence: None)
  Receive Date: 20080129
  Receipt Date: 20070906
  Transmission Date: 20080703
  Serious: Yes (Hospitalization)
  Sender: FDA-Public Use
  Company Number: WAES 0709USA00890

PATIENT
  Age: 40 Year
  Sex: Male

DRUGS (1)
  1. INVANZ [Suspect]
     Indication: OSTEOMYELITIS
     Dosage: IV
     Route: 042
     Dates: start: 20070801, end: 20070801

REACTIONS (1)
  - CONVULSION [None]
